FAERS Safety Report 23189327 (Version 1)
Quarter: 2023Q4

REPORT INFORMATION
  Report Type: Spontaneous
  Country: CN (occurrence: CN)
  Receive Date: 20231116
  Receipt Date: 20231116
  Transmission Date: 20240109
  Serious: Yes (Other)
  Sender: FDA-Public Use
  Company Number: CN-STRIDES ARCOLAB LIMITED-2023SP016970

PATIENT
  Age: 30 Year
  Sex: Female

DRUGS (3)
  1. ETOPOSIDE [Suspect]
     Active Substance: ETOPOSIDE
     Indication: Ovarian granulosa cell tumour
     Dosage: UNK, FOUR CYCLES
     Route: 065
  2. BLEOMYCIN [Suspect]
     Active Substance: BLEOMYCIN SULFATE
     Indication: Ovarian granulosa cell tumour
     Dosage: UNK, FOUR CYCLES
     Route: 065
  3. CARBOPLATIN [Suspect]
     Active Substance: CARBOPLATIN
     Indication: Ovarian granulosa cell tumour
     Dosage: UNK, FOUR CYCLES
     Route: 065

REACTIONS (2)
  - Infertility [Unknown]
  - Off label use [Unknown]
